FAERS Safety Report 4313525-4 (Version None)
Quarter: 2004Q1

REPORT INFORMATION
  Report Type: 
  Country: None (occurrence: None)
  Receive Date: 20040308
  Receipt Date: 20031209
  Transmission Date: 20041129
  Serious: Yes (Other)
  Sender: FDA-Public Use
  Company Number: FR-GLAXOSMITHKLINE-B0317369A

PATIENT
  Age: 78 Year
  Sex: Male
  Weight: 90 kg

DRUGS (6)
  1. AVANDIA [Suspect]
     Indication: DIABETES MELLITUS NON-INSULIN-DEPENDENT
     Dosage: 6MG PER DAY
     Route: 048
     Dates: start: 20030708, end: 20031014
  2. BIPRETERAX [Concomitant]
     Indication: HYPERTENSION
     Dosage: 1TAB PER DAY
     Route: 048
     Dates: start: 20010205
  3. NOCTRAN [Concomitant]
     Indication: INSOMNIA
     Dosage: 1TAB PER DAY
     Route: 048
     Dates: start: 19970303
  4. PROPOFOL [Concomitant]
     Indication: OSTEOARTHRITIS
     Dosage: 6TAB PER DAY
     Route: 048
     Dates: start: 19970303
  5. PERMIXON [Concomitant]
     Indication: BENIGN PROSTATIC HYPERPLASIA
     Dosage: 160MG TWICE PER DAY
     Route: 048
     Dates: start: 19970101
  6. DAONIL [Concomitant]
     Indication: DIABETES MELLITUS NON-INSULIN-DEPENDENT
     Dosage: 5MG TWICE PER DAY
     Route: 048
     Dates: start: 19980601

REACTIONS (4)
  - ASTHENIA [None]
  - HEADACHE [None]
  - SOMNOLENCE [None]
  - VERTIGO [None]
